FAERS Safety Report 13826290 (Version 1)
Quarter: 2017Q3

REPORT INFORMATION
  Report Type: Spontaneous
  Country: US (occurrence: US)
  Receive Date: 20170802
  Receipt Date: 20170802
  Transmission Date: 20171127
  Serious: Yes (Other)
  Sender: FDA-Public Use
  Company Number: US-BEH-2017082414

PATIENT
  Sex: Female
  Weight: 70.3 kg

DRUGS (9)
  1. CALCIUM [Concomitant]
     Active Substance: CALCIUM
  2. ACETAMINOPHEN. [Concomitant]
     Active Substance: ACETAMINOPHEN
  3. HIZENTRA [Suspect]
     Active Substance: HUMAN IMMUNOGLOBULIN G
     Indication: IMMUNODEFICIENCY COMMON VARIABLE
     Dosage: 10 G, QW
     Route: 058
     Dates: start: 20151001
  4. DIPHENHYDRAMINE. [Concomitant]
     Active Substance: DIPHENHYDRAMINE
  5. VITAMIN D3 [Concomitant]
     Active Substance: CHOLECALCIFEROL
  6. LORATADINE. [Concomitant]
     Active Substance: LORATADINE
  7. MAGNESIUM [Concomitant]
     Active Substance: MAGNESIUM
  8. EPIPEN [Concomitant]
     Active Substance: EPINEPHRINE
  9. HIZENTRA [Suspect]
     Active Substance: HUMAN IMMUNOGLOBULIN G
     Dosage: UNK
     Route: 058

REACTIONS (1)
  - Rectal cancer [Unknown]
